FAERS Safety Report 5444079-7 (Version None)
Quarter: 2007Q3

REPORT INFORMATION
  Report Type: 
  Country: None (occurrence: None)
  Receive Date: 20070831
  Receipt Date: 20070817
  Transmission Date: 20080115
  Serious: Yes (Hospitalization)
  Sender: FDA-Public Use
  Company Number: S06-CAN-02795-01

PATIENT
  Age: 62 Year
  Sex: Male

DRUGS (7)
  1. TIAZAC [Suspect]
     Indication: HYPERTENSION
  2. ATORVASTATIN [Concomitant]
  3. ADVAIR DISKUS 100/50 [Concomitant]
  4. ISOSORBIDE DINITRATE [Concomitant]
  5. GLICLAZIDE [Concomitant]
  6. ENALAPRIL [Concomitant]
  7. ASPIRIN [Concomitant]

REACTIONS (4)
  - CARDIAC FAILURE CONGESTIVE [None]
  - CONDITION AGGRAVATED [None]
  - HYPERTENSION [None]
  - MYOCARDIAL ISCHAEMIA [None]
